FAERS Safety Report 8902463 (Version 1)
Quarter: 2012Q4

REPORT INFORMATION
  Report Type: Report from Study
  Country: JP (occurrence: JP)
  Receive Date: 20121112
  Receipt Date: 20121112
  Transmission Date: 20130627
  Serious: Yes (Hospitalization)
  Sender: FDA-Public Use
  Company Number: JP-VERTEX PHARMACEUTICAL INC.-2012-024336

PATIENT
  Age: 62 Year
  Sex: Female

DRUGS (6)
  1. VX-950 (TELAPREVIR) [Suspect]
     Indication: CHRONIC HEPATITIS C
     Dosage: 1500 mg, qd
     Route: 048
     Dates: start: 20120716, end: 20121008
  2. PEGINTERFERON ALFA-2B [Concomitant]
     Dosage: 1.5 ?g/kg, UNK
     Route: 058
     Dates: start: 20120716
  3. RIBAVIRIN [Concomitant]
     Dosage: 600 mg, qd
     Route: 048
     Dates: start: 20120716, end: 20120805
  4. RIBAVIRIN [Concomitant]
     Dosage: 200 mg, qd
     Route: 048
     Dates: start: 20120806, end: 20120815
  5. FULMETA [Concomitant]
     Dosage: 5 g, qd
     Route: 061
     Dates: start: 20120723
  6. BONALON [Concomitant]
     Dosage: 35 mg, qd
     Route: 048
     Dates: start: 20120910

REACTIONS (8)
  - Nodular fasciitis [Recovered/Resolved]
  - Panniculitis [Recovered/Resolved]
  - Drug eruption [None]
  - Pruritus [None]
  - Insomnia [None]
  - Pyrexia [None]
  - Abdominal pain upper [None]
  - Hyperuricaemia [None]
